FAERS Safety Report 17254053 (Version 2)
Quarter: 2021Q4

REPORT INFORMATION
  Report Type: Spontaneous
  Country: FR (occurrence: FR)
  Receive Date: 20200109
  Receipt Date: 20211004
  Transmission Date: 20220303
  Serious: Yes (Other)
  Sender: FDA-Public Use
  Company Number: FR-PHARMATHEN-GPV2019PHT037587

PATIENT
  Age: 75 Year
  Sex: Female
  Weight: 45 kg

DRUGS (6)
  1. VORICONAZOLE [Suspect]
     Active Substance: VORICONAZOLE
     Indication: Cerebral aspergillosis
     Dosage: 400 MILLIGRAM, QD
  2. VORICONAZOLE [Suspect]
     Active Substance: VORICONAZOLE
     Dosage: 350 MG TWICE A DAY (B.I.D.) (8 MG/KG OF BODY WEIGHT B.I.D.)
  3. VORICONAZOLE [Suspect]
     Active Substance: VORICONAZOLE
     Dosage: MIN 250MG QD TO MAX 400MG BID
     Route: 048
  4. VORICONAZOLE [Suspect]
     Active Substance: VORICONAZOLE
     Indication: Cerebral aspergillosis
     Dosage: DOSAGE RANGE: MIN 200MG BID TO MAX 300MG TID
     Route: 042
  5. AMPHOTERICIN B [Concomitant]
     Active Substance: AMPHOTERICIN B
     Indication: Cerebral aspergillosis
     Dosage: UNK
     Route: 042
  6. OMEPRAZOLE [Concomitant]
     Active Substance: OMEPRAZOLE
     Indication: Drug interaction
     Dosage: UNK
     Route: 065

REACTIONS (5)
  - Drug level below therapeutic [Unknown]
  - Hallucination, visual [Unknown]
  - Treatment failure [Unknown]
  - Prescribed overdose [Unknown]
  - Off label use [Unknown]
